FAERS Safety Report 23318918 (Version 1)
Quarter: 2023Q4

REPORT INFORMATION
  Report Type: Report from Study
  Country: US (occurrence: US)
  Receive Date: 20231220
  Receipt Date: 20231220
  Transmission Date: 20240110
  Serious: Yes (Other)
  Sender: FDA-Public Use
  Company Number: US-ABBVIE-5548384

PATIENT
  Sex: Male

DRUGS (1)
  1. RINVOQ [Suspect]
     Active Substance: UPADACITINIB
     Indication: Ankylosing spondylitis
     Dosage: FORM STRENGTH: 15 MILLIGRAM
     Route: 048
     Dates: start: 20231013

REACTIONS (14)
  - Oesophageal obstruction [Unknown]
  - Dizziness [Recovering/Resolving]
  - Vomiting [Recovering/Resolving]
  - Hypotension [Unknown]
  - Arthralgia [Not Recovered/Not Resolved]
  - Dizziness [Unknown]
  - Back pain [Unknown]
  - Fall [Unknown]
  - Abdominal discomfort [Recovering/Resolving]
  - Asthenia [Recovering/Resolving]
  - Weight decreased [Unknown]
  - Gastrooesophageal reflux disease [Recovering/Resolving]
  - Pain in extremity [Not Recovered/Not Resolved]
  - Loss of consciousness [Not Recovered/Not Resolved]

NARRATIVE: CASE EVENT DATE: 20230101
